FAERS Safety Report 7499711-3 (Version None)
Quarter: 2011Q2

REPORT INFORMATION
  Report Type: 
  Country: None (occurrence: None)
  Receive Date: 20110524
  Receipt Date: 20110514
  Transmission Date: 20111010
  Serious: Yes (Hospitalization, Other)
  Sender: FDA-Public Use
  Company Number: HU-ROCHE-777658

PATIENT
  Age: 39 Year
  Sex: Female

DRUGS (2)
  1. BEVACIZUMAB [Suspect]
     Route: 042
  2. PACLITAXEL [Concomitant]

REACTIONS (4)
  - CARDIAC FAILURE [None]
  - HYPERTONIA [None]
  - NEUTROPENIA [None]
  - EPISTAXIS [None]
